FAERS Safety Report 12923809 (Version 15)
Quarter: 2017Q4

REPORT INFORMATION
  Report Type: Report from Study
  Country: BR (occurrence: BR)
  Receive Date: 20161108
  Receipt Date: 20171113
  Transmission Date: 20180320
  Serious: Yes (Other)
  Sender: FDA-Public Use
  Company Number: BR-JNJFOC-20161106272

PATIENT
  Age: 51 Year
  Sex: Female
  Weight: 53 kg

DRUGS (9)
  1. TRAMAL [Concomitant]
     Active Substance: TRAMADOL
     Route: 065
  2. SIMPONI [Suspect]
     Active Substance: GOLIMUMAB
     Indication: PSORIATIC ARTHROPATHY
     Route: 058
     Dates: start: 20161101, end: 201703
  3. SIMPONI [Suspect]
     Active Substance: GOLIMUMAB
     Indication: RHEUMATOID ARTHRITIS
     Route: 058
     Dates: start: 20161101, end: 201703
  4. METHOTREXATE. [Concomitant]
     Active Substance: METHOTREXATE
     Route: 065
  5. NEUTROFER [Concomitant]
     Active Substance: FERROUS BISGLYCINATE
     Route: 065
  6. OLCADIL [Concomitant]
     Active Substance: CLOXAZOLAM
     Route: 065
  7. SIMPONI [Suspect]
     Active Substance: GOLIMUMAB
     Indication: PSORIATIC ARTHROPATHY
     Route: 058
  8. SIMPONI [Suspect]
     Active Substance: GOLIMUMAB
     Indication: RHEUMATOID ARTHRITIS
     Route: 058
  9. CITALOPRAM [Concomitant]
     Active Substance: CITALOPRAM HYDROBROMIDE
     Route: 065

REACTIONS (26)
  - Gastritis bacterial [Unknown]
  - Ear infection [Unknown]
  - Pharyngitis [Unknown]
  - Bladder disorder [Not Recovered/Not Resolved]
  - Bladder pain [Not Recovered/Not Resolved]
  - Medication error [Unknown]
  - Asthmatic crisis [Unknown]
  - Candida infection [Unknown]
  - Lung disorder [Unknown]
  - Foot deformity [Unknown]
  - Renal pain [Not Recovered/Not Resolved]
  - Urticaria [Unknown]
  - Weight increased [Unknown]
  - Pain [Not Recovered/Not Resolved]
  - Pain in extremity [Unknown]
  - Cholecystitis infective [Unknown]
  - Psoriasis [Unknown]
  - Gastrointestinal inflammation [Unknown]
  - Hand deformity [Unknown]
  - Pruritus [Recovered/Resolved]
  - Urinary tract infection bacterial [Recovered/Resolved]
  - Urinary tract infection [Unknown]
  - Product storage error [Unknown]
  - Gastric bypass [Unknown]
  - Urine output decreased [Not Recovered/Not Resolved]
  - Asthenia [Recovered/Resolved]

NARRATIVE: CASE EVENT DATE: 201611
